FAERS Safety Report 6711221-7 (Version None)
Quarter: 2010Q2

REPORT INFORMATION
  Report Type: 
  Country: None (occurrence: None)
  Receive Date: 20100505
  Receipt Date: 20100423
  Transmission Date: 20101027
  Serious: Yes (Other)
  Sender: FDA-Public Use
  Company Number: US-SANOFI-AVENTIS-2010SA015942

PATIENT
  Age: 59 Year
  Sex: Male
  Weight: 144 kg

DRUGS (5)
  1. MULTAQ [Suspect]
     Route: 048
     Dates: start: 20100226, end: 20100412
  2. TOPROL-XL [Concomitant]
  3. CRESTOR [Concomitant]
     Dates: end: 20100316
  4. BENICAR HCT [Concomitant]
     Dates: end: 20100316
  5. WARFARIN [Concomitant]

REACTIONS (3)
  - ATRIAL FIBRILLATION [None]
  - BLOOD CREATININE INCREASED [None]
  - BLOOD UREA INCREASED [None]
